FAERS Safety Report 4386014-9 (Version None)
Quarter: 2004Q2

REPORT INFORMATION
  Report Type: 
  Country: None (occurrence: None)
  Receive Date: 20040628
  Receipt Date: 20030929
  Transmission Date: 20050107
  Serious: Yes (Other)
  Sender: FDA-Public Use
  Company Number: US-MERCK-0310USA00114

PATIENT
  Age: 66 Year
  Sex: Female
  Weight: 88 kg

DRUGS (1)
  1. VIOXX [Suspect]
     Indication: ARTHRITIS
     Route: 048
     Dates: start: 19990101, end: 20000101

REACTIONS (17)
  - ANXIETY DISORDER [None]
  - ARTHRITIS [None]
  - ARTHROPATHY [None]
  - CARCINOMA [None]
  - CARDIAC MURMUR [None]
  - CHEST PAIN [None]
  - CONTUSION [None]
  - DYSPNOEA [None]
  - EMOTIONAL DISTRESS [None]
  - FATIGUE [None]
  - GASTRIC DISORDER [None]
  - HAEMORRHAGE [None]
  - PALPITATIONS [None]
  - PANIC DISORDER [None]
  - PEPTIC ULCER [None]
  - SWELLING [None]
  - URINE ODOUR ABNORMAL [None]
